FAERS Safety Report 8977165 (Version 1)
Quarter: 2012Q4

REPORT INFORMATION
  Report Type: 
  Country: US (occurrence: US)
  Receive Date: 20121220
  Receipt Date: 20121220
  Transmission Date: 20130627
  Serious: Yes (Hospitalization, Other)
  Sender: FDA-Public Use
  Company Number: US-ELI_LILLY_AND_COMPANY-US201212006029

PATIENT
  Age: 58 Year
  Sex: Male

DRUGS (4)
  1. TOBRAMYCIN [Suspect]
     Dosage: 3 g, UNK
  2. VANCOMYCIN [Concomitant]
     Dosage: 1 g, bid
     Route: 042
  3. VANCOMYCIN [Concomitant]
     Dosage: 3 g, other
  4. HEPARIN [Concomitant]
     Indication: THROMBOSIS PROPHYLAXIS
     Route: 058

REACTIONS (1)
  - Renal failure acute [Recovering/Resolving]
